FAERS Safety Report 18553895 (Version 1)
Quarter: 2020Q4

REPORT INFORMATION
  Report Type: Report from Study
  Country: AU (occurrence: AU)
  Receive Date: 20201127
  Receipt Date: 20201127
  Transmission Date: 20210114
  Serious: Yes (Hospitalization)
  Sender: FDA-Public Use
  Company Number: NVSC2020AU015894

PATIENT
  Age: 68 Year
  Sex: Male
  Weight: 72 kg

DRUGS (10)
  1. VITAMIN D [Concomitant]
     Active Substance: VITAMIN D NOS
     Indication: PROPHYLAXIS
     Dosage: UNK
     Route: 065
     Dates: start: 20160707
  2. BINIMETINIB [Suspect]
     Active Substance: BINIMETINIB
     Dosage: 30 MG, BID
     Route: 048
     Dates: start: 20200120
  3. LGX818 [Suspect]
     Active Substance: ENCORAFENIB
     Dosage: 100 MG, QD
     Route: 048
     Dates: start: 20200120
  4. PANADOL [Concomitant]
     Active Substance: ACETAMINOPHEN
     Indication: PRODUCT USED FOR UNKNOWN INDICATION
     Route: 065
  5. MICARDIS [Concomitant]
     Active Substance: TELMISARTAN
     Indication: HYPERTENSION
     Dosage: UNK
     Route: 065
     Dates: start: 20160217, end: 20191224
  6. LEE011 [Suspect]
     Active Substance: RIBOCICLIB
     Dosage: 400 MG, QD 3 WEEKS ON 1 WEEK OFF
     Route: 048
     Dates: start: 20200120
  7. LGX818 [Suspect]
     Active Substance: ENCORAFENIB
     Indication: NEOPLASM
     Dosage: 100 MG, QD
     Route: 048
     Dates: start: 20160217, end: 20191224
  8. CELESTONE [Concomitant]
     Active Substance: BETAMETHASONE
     Indication: ECZEMA
     Dosage: UNK
     Route: 065
     Dates: start: 20181122, end: 202001
  9. BINIMETINIB [Suspect]
     Active Substance: BINIMETINIB
     Indication: NEOPLASM
     Dosage: 30 MG, BID
     Route: 048
     Dates: start: 20160217, end: 20191224
  10. LEE011 [Suspect]
     Active Substance: RIBOCICLIB
     Indication: NEOPLASM
     Dosage: 400 MG, QD 3 WEEKS ON 1 WEEK OFF
     Route: 048
     Dates: start: 20160217, end: 20191224

REACTIONS (2)
  - Polyarthritis [Recovered/Resolved]
  - Pyrexia [Recovered/Resolved]

NARRATIVE: CASE EVENT DATE: 20191224
